FAERS Safety Report 26057745 (Version 1)
Quarter: 2025Q4

REPORT INFORMATION
  Report Type: Spontaneous
  Country: EU (occurrence: EU)
  Receive Date: 20251118
  Receipt Date: 20251118
  Transmission Date: 20260119
  Serious: Yes (Hospitalization)
  Sender: AUROBINDO
  Company Number: EU-AFSSAPS-SE2025000962

PATIENT
  Age: 64 Year
  Sex: Female
  Weight: 117 kg

DRUGS (1)
  1. PANTOPRAZOLE [Suspect]
     Active Substance: PANTOPRAZOLE
     Indication: Gastrooesophageal reflux disease
     Dosage: 40 MILLIGRAM, ONCE A DAY
     Dates: start: 20250927, end: 20251013

REACTIONS (1)
  - Henoch-Schonlein purpura [Recovered/Resolved]

NARRATIVE: CASE EVENT DATE: 20251011
